FAERS Safety Report 8832415 (Version 1)
Quarter: 2012Q4

REPORT INFORMATION
  Report Type: Spontaneous
  Country: US (occurrence: None)
  Receive Date: 20121005
  Receipt Date: 20121005
  Transmission Date: 20130627
  Serious: Yes (Death)
  Sender: FDA-Public Use
  Company Number: US-2012-11432

PATIENT
  Age: 64 Year
  Sex: Male
  Weight: 81.6 kg

DRUGS (1)
  1. SAMSCA (TOLVAPTAN) TABLET [Suspect]
     Indication: SODIUM LOW
     Route: 048

REACTIONS (1)
  - Small cell carcinoma [None]
